FAERS Safety Report 9671949 (Version 3)
Quarter: 2014Q1

REPORT INFORMATION
  Report Type: Spontaneous
  Country: US (occurrence: US)
  Receive Date: 20131106
  Receipt Date: 20140311
  Transmission Date: 20141002
  Serious: No
  Sender: FDA-Public Use
  Company Number: US-009507513-1311USA000028

PATIENT
  Age: 80 Year
  Sex: Female
  Weight: 56.69 kg

DRUGS (6)
  1. OXYTROL FOR WOMEN [Suspect]
     Indication: INCONTINENCE
     Dosage: UNK, UNKNOWN
     Route: 062
     Dates: start: 20130930
  2. DEPOESTRADIOL [Concomitant]
     Indication: HORMONE REPLACEMENT THERAPY
     Dosage: UNK, UNKNOWN
  3. NEXIUM [Concomitant]
     Indication: GASTROOESOPHAGEAL REFLUX DISEASE
     Dosage: UNK, UNKNOWN
  4. CYANOCOBALAMIN [Concomitant]
     Indication: PRODUCT USED FOR UNKNOWN INDICATION
     Dosage: UNK, UNKNOWN
  5. MOTRIN [Concomitant]
     Indication: ARTHRALGIA
     Dosage: UNK, UNKNOWN
  6. TYLENOL [Concomitant]
     Indication: ARTHRALGIA
     Dosage: UNK, UNKNOWN

REACTIONS (3)
  - Abdominal discomfort [Unknown]
  - Drug ineffective [Unknown]
  - Product quality issue [Unknown]
